FAERS Safety Report 6392527-0 (Version None)
Quarter: 2009Q4

REPORT INFORMATION
  Report Type: 
  Country: None (occurrence: None)
  Receive Date: 20091007
  Receipt Date: 20090930
  Transmission Date: 20100525
  Serious: Yes (Other)
  Sender: FDA-Public Use
  Company Number: GB-ABBOTT-09P-167-0600249-00

PATIENT
  Age: 35 Year
  Sex: Male

DRUGS (1)
  1. HUMIRA [Suspect]
     Indication: DRUG USE FOR UNKNOWN INDICATION
     Dates: start: 20070101, end: 20080101

REACTIONS (5)
  - MUSCLE TWITCHING [None]
  - MUSCULAR WEAKNESS [None]
  - RESTLESS LEGS SYNDROME [None]
  - TREMOR [None]
  - VISUAL IMPAIRMENT [None]
